FAERS Safety Report 10042203 (Version 1)
Quarter: 2014Q1

REPORT INFORMATION
  Report Type: Spontaneous
  Country: US (occurrence: US)
  Receive Date: 20140327
  Receipt Date: 20140327
  Transmission Date: 20141002
  Serious: No
  Sender: FDA-Public Use
  Company Number: US-PFIZER INC-2014086263

PATIENT
  Age: 56 Year
  Sex: Female
  Weight: 54.42 kg

DRUGS (1)
  1. ADVIL [Suspect]
     Indication: PAIN
     Dosage: TWO CAPSULES OF 100 MG AS NEEDED

REACTIONS (3)
  - Fall [Unknown]
  - Contusion [Unknown]
  - Pain in extremity [Unknown]
